FAERS Safety Report 17242055 (Version 1)
Quarter: 2020Q1

REPORT INFORMATION
  Report Type: Report from Study
  Country: CA (occurrence: CA)
  Receive Date: 20200107
  Receipt Date: 20200107
  Transmission Date: 20200409
  Serious: Yes (Life-Threatening, Hospitalization)
  Sender: FDA-Public Use
  Company Number: PHHY2019CA114086

PATIENT
  Sex: Female

DRUGS (2)
  1. STATEX [MORPHINE SULFATE] [Suspect]
     Active Substance: MORPHINE SULFATE
     Indication: PAIN
     Route: 065
  2. AFINITOR [Suspect]
     Active Substance: EVEROLIMUS
     Indication: BREAST CANCER
     Dosage: 10 MG, QD
     Route: 048
     Dates: start: 20190418

REACTIONS (7)
  - Oral pain [Unknown]
  - General physical health deterioration [Not Recovered/Not Resolved]
  - Taste disorder [Unknown]
  - Hypoaesthesia [Unknown]
  - Constipation [Unknown]
  - Pain [Unknown]
  - Sinusitis [Unknown]
